FAERS Safety Report 7988567-8 (Version None)
Quarter: 2011Q4

REPORT INFORMATION
  Report Type: 
  Country: None (occurrence: None)
  Receive Date: 20111218
  Receipt Date: 20080924
  Transmission Date: 20120403
  Serious: Yes (Other)
  Sender: FDA-Public Use
  Company Number: PHHY2008MX39274

PATIENT
  Sex: Female

DRUGS (1)
  1. DIOVAN HCT [Suspect]
     Indication: HYPERTENSION
     Dosage: 1 DF, PER DAY
     Dates: start: 20050101

REACTIONS (7)
  - SOMNOLENCE [None]
  - FATIGUE [None]
  - ASTHENIA [None]
  - EMBOLISM [None]
  - BONE PAIN [None]
  - HYPERTENSION [None]
  - DIABETIC COMPLICATION [None]
